FAERS Safety Report 6051276-9 (Version None)
Quarter: 2009Q1

REPORT INFORMATION
  Report Type: 
  Country: None (occurrence: None)
  Receive Date: 20090126
  Receipt Date: 20090112
  Transmission Date: 20090719
  Serious: Yes (Hospitalization, Other)
  Sender: FDA-Public Use
  Company Number: US-BIOGENIDEC-2008BI022961

PATIENT
  Age: 61 Year
  Sex: Male

DRUGS (14)
  1. TYSABRI [Suspect]
     Indication: MULTIPLE SCLEROSIS
     Route: 042
     Dates: start: 20080103, end: 20080716
  2. LEXAPRO [Concomitant]
     Indication: DRUG USE FOR UNKNOWN INDICATION
  3. LUNESTA [Concomitant]
     Indication: DRUG USE FOR UNKNOWN INDICATION
  4. NEURONTIN [Concomitant]
     Indication: DRUG USE FOR UNKNOWN INDICATION
  5. AMBIEN CR [Concomitant]
     Indication: DRUG USE FOR UNKNOWN INDICATION
  6. PERCOCET [Concomitant]
     Indication: DRUG USE FOR UNKNOWN INDICATION
  7. TRILEPTAL [Concomitant]
     Indication: DRUG USE FOR UNKNOWN INDICATION
  8. METFORMIN HCL [Concomitant]
     Indication: DRUG USE FOR UNKNOWN INDICATION
  9. NORVASC [Concomitant]
     Indication: DRUG USE FOR UNKNOWN INDICATION
  10. HYDROCHLOROTHIAZIDE [Concomitant]
     Indication: DRUG USE FOR UNKNOWN INDICATION
  11. HUMULIN 70/30 [Concomitant]
     Indication: DRUG USE FOR UNKNOWN INDICATION
  12. ATENOLOL [Concomitant]
     Indication: DRUG USE FOR UNKNOWN INDICATION
  13. ZESTRIL [Concomitant]
     Indication: DRUG USE FOR UNKNOWN INDICATION
  14. DIGITEK [Concomitant]
     Indication: DRUG USE FOR UNKNOWN INDICATION

REACTIONS (1)
  - COLON CANCER STAGE III [None]
